FAERS Safety Report 15274274 (Version 2)
Quarter: 2018Q3

REPORT INFORMATION
  Report Type: Spontaneous
  Country: US (occurrence: US)
  Receive Date: 20180814
  Receipt Date: 20180814
  Transmission Date: 20181010
  Serious: Yes (Hospitalization, Other)
  Sender: FDA-Public Use
  Company Number: US-AUROBINDO-AUR-APL-2018-040988

PATIENT
  Age: 37 Year
  Sex: Female

DRUGS (1)
  1. PREDNISONE. [Suspect]
     Active Substance: PREDNISONE
     Indication: SYSTEMIC LUPUS ERYTHEMATOSUS
     Dosage: UNK
     Route: 065

REACTIONS (9)
  - Hyperglycaemia [Recovered/Resolved]
  - Oedema peripheral [Unknown]
  - Blood corticotrophin increased [Unknown]
  - Pituitary tumour benign [Unknown]
  - Galactorrhoea [Unknown]
  - Obesity [Unknown]
  - Hyperadrenocorticism [Unknown]
  - Weight increased [Unknown]
  - Amenorrhoea [Unknown]
